FAERS Safety Report 12678284 (Version 1)
Quarter: 2016Q3

REPORT INFORMATION
  Report Type: Spontaneous
  Country: GB (occurrence: GB)
  Receive Date: 20160823
  Receipt Date: 20160823
  Transmission Date: 20161109
  Serious: Yes (Other)
  Sender: FDA-Public Use
  Company Number: GB-MYLANLABS-2016M1034257

PATIENT

DRUGS (1)
  1. LETROZOLE. [Suspect]
     Active Substance: LETROZOLE
     Indication: BREAST CANCER
     Dosage: 2.5 MG, UNK

REACTIONS (4)
  - Vision blurred [Unknown]
  - Bone pain [Unknown]
  - Eye disorder [Not Recovered/Not Resolved]
  - Myalgia [Unknown]
